FAERS Safety Report 7209952-8 (Version None)
Quarter: 2011Q1

REPORT INFORMATION
  Report Type: 
  Country: None (occurrence: None)
  Receive Date: 20110105
  Receipt Date: 20101221
  Transmission Date: 20110831
  Serious: No
  Sender: FDA-Public Use
  Company Number: US-BIOGENIDEC-2010BI042600

PATIENT
  Sex: Male

DRUGS (1)
  1. TYSABRI [Suspect]
     Indication: MULTIPLE SCLEROSIS
     Route: 042
     Dates: start: 20081030

REACTIONS (5)
  - BALANCE DISORDER [None]
  - COGNITIVE DISORDER [None]
  - CATARACT OPERATION [None]
  - APHASIA [None]
  - VITAMIN B12 DECREASED [None]
